FAERS Safety Report 23850309 (Version 1)
Quarter: 2024Q2

REPORT INFORMATION
  Report Type: Spontaneous
  Country: BR (occurrence: BR)
  Receive Date: 20240513
  Receipt Date: 20240513
  Transmission Date: 20240716
  Serious: Yes (Death, Life-Threatening, Hospitalization)
  Sender: FDA-Public Use
  Company Number: BR-TEVA-VS-3195264

PATIENT
  Age: 80 Year
  Sex: Female

DRUGS (12)
  1. CARBOPLATIN [Suspect]
     Active Substance: CARBOPLATIN
     Indication: Uterine cancer
     Dosage: CARBOPLATIN 355 MG INTRAVENOUSLY IN 250 ML OF GLUCOSE SOLUTION OVER 1 HOUR
     Route: 042
     Dates: start: 20240126, end: 20240126
  2. PACLITAXEL [Suspect]
     Active Substance: PACLITAXEL
     Indication: Uterine cancer
     Dosage: PACLITAXEL 269 MG INTRAVENOUSLY IN 500 ML OF SALINE SOLUTION OVER 3 HOURS
     Route: 042
     Dates: start: 20240126
  3. LOSARTAN [Concomitant]
     Active Substance: LOSARTAN
     Route: 048
  4. AMLODIPINE [Concomitant]
     Active Substance: AMLODIPINE BESYLATE
     Route: 048
  5. HYDROCHLOROTHIAZIDE [Concomitant]
     Active Substance: HYDROCHLOROTHIAZIDE
     Route: 048
  6. DIPYRONE [Concomitant]
     Active Substance: DIPYRONE
     Dosage: 1G SOS
     Route: 048
  7. LOPERAMIDE [Concomitant]
     Active Substance: LOPERAMIDE
     Route: 048
  8. DEXAMETHASONE [Concomitant]
     Active Substance: DEXAMETHASONE
     Route: 042
  9. DEXAMETHASONE [Concomitant]
     Active Substance: DEXAMETHASONE
     Route: 048
  10. ONDANSETRON [Concomitant]
     Active Substance: ONDANSETRON
     Route: 042
  11. HYDROCORTISONE [Concomitant]
     Active Substance: HYDROCORTISONE
     Route: 042
  12. DIPHENHYDRAMINE [Concomitant]
     Active Substance: DIPHENHYDRAMINE
     Route: 042

REACTIONS (3)
  - Neutropenia [Fatal]
  - Asthenia [Fatal]
  - Confusional state [Fatal]

NARRATIVE: CASE EVENT DATE: 20240206
